FAERS Safety Report 8904267 (Version 1)
Quarter: 2012Q4

REPORT INFORMATION
  Report Type: 
  Country: US (occurrence: US)
  Receive Date: 20121112
  Receipt Date: 20121112
  Transmission Date: 20130627
  Serious: Yes (Other)
  Sender: FDA-Public Use
  Company Number: US-ASTRAZENECA-2012SE83662

PATIENT
  Sex: Female

DRUGS (4)
  1. SEROQUEL [Suspect]
     Indication: BIPOLAR DISORDER
     Dosage: 100 TO 300
     Route: 048
  2. TOPIRAMATE [Concomitant]
  3. CLONAZEPAM [Concomitant]
  4. METHYPHENIDATE [Concomitant]

REACTIONS (2)
  - Locked-in syndrome [Unknown]
  - Somnolence [Unknown]
